FAERS Safety Report 6464842-3 (Version None)
Quarter: 2009Q4

REPORT INFORMATION
  Report Type: 
  Country: None (occurrence: None)
  Receive Date: 20091201
  Receipt Date: 20091123
  Transmission Date: 20100525
  Serious: Yes (Death)
  Sender: FDA-Public Use
  Company Number: A0807228A

PATIENT
  Age: 70 Year
  Sex: Female

DRUGS (1)
  1. ARIXTRA [Suspect]
     Indication: DEEP VEIN THROMBOSIS
     Dosage: 1INJ PER DAY
     Route: 058
     Dates: start: 20090406, end: 20090719

REACTIONS (2)
  - DEEP VEIN THROMBOSIS [None]
  - PANCREATIC CARCINOMA [None]
